FAERS Safety Report 15318835 (Version 1)
Quarter: 2018Q3

REPORT INFORMATION
  Report Type: Spontaneous
  Country: US (occurrence: US)
  Receive Date: 20180819
  Receipt Date: 20180819
  Transmission Date: 20181010
  Serious: Yes (Disabling)
  Sender: FDA-Public Use
  Company Number: None

PATIENT
  Age: 40 Year
  Sex: Female
  Weight: 116.1 kg

DRUGS (14)
  1. LIDOCAINE. [Concomitant]
     Active Substance: LIDOCAINE
  2. BLACK COHOSH [Concomitant]
     Active Substance: BLACK COHOSH
  3. LORATADINE. [Concomitant]
     Active Substance: LORATADINE
  4. OMEPRAZOLE. [Concomitant]
     Active Substance: OMEPRAZOLE
  5. HYDROCORTISONE. [Concomitant]
     Active Substance: HYDROCORTISONE
  6. METFORMIN [Suspect]
     Active Substance: METFORMIN HYDROCHLORIDE
     Indication: INSULIN RESISTANCE
     Dosage: ?          QUANTITY:1 CAPSULE(S);?
     Route: 048
  7. TURMERIC [Concomitant]
     Active Substance: HERBALS\TURMERIC
  8. CUMIN. [Concomitant]
     Active Substance: CUMIN
  9. METFORMIN [Suspect]
     Active Substance: METFORMIN HYDROCHLORIDE
     Indication: POLYCYSTIC OVARIES
     Dosage: ?          QUANTITY:1 CAPSULE(S);?
     Route: 048
  10. ALBUTEROL. [Concomitant]
     Active Substance: ALBUTEROL
  11. SPIRONOLACTONE. [Concomitant]
     Active Substance: SPIRONOLACTONE
  12. AMLODIPINE [Concomitant]
     Active Substance: AMLODIPINE BESYLATE
  13. ACETAMINOPHEN. [Concomitant]
     Active Substance: ACETAMINOPHEN
  14. CINNAMON. [Concomitant]
     Active Substance: CINNAMON

REACTIONS (7)
  - Loss of control of legs [None]
  - Paraesthesia [None]
  - Constipation [None]
  - Treatment noncompliance [None]
  - Pain in extremity [None]
  - Muscular weakness [None]
  - Hypoaesthesia [None]

NARRATIVE: CASE EVENT DATE: 20180801
